FAERS Safety Report 8444658-9 (Version None)
Quarter: 2012Q2

REPORT INFORMATION
  Report Type: 
  Country: None (occurrence: None)
  Receive Date: 20120618
  Receipt Date: 20120607
  Transmission Date: 20120825
  Serious: Yes (Hospitalization)
  Sender: FDA-Public Use
  Company Number: JP-ASTRAZENECA-2012SE25380

PATIENT
  Age: 61 Year
  Sex: Female

DRUGS (2)
  1. NEXIUM [Suspect]
     Route: 048
     Dates: start: 20120405, end: 20120413
  2. NEXIUM [Suspect]
     Route: 048
     Dates: start: 20120201

REACTIONS (1)
  - INTERSTITIAL LUNG DISEASE [None]
